FAERS Safety Report 18432001 (Version 1)
Quarter: 2020Q4

REPORT INFORMATION
  Report Type: Report from Study
  Country: DE (occurrence: DE)
  Receive Date: 20201027
  Receipt Date: 20201027
  Transmission Date: 20210114
  Serious: Yes (Hospitalization)
  Sender: FDA-Public Use
  Company Number: DE-JNJFOC-20201031312

PATIENT
  Age: 71 Year
  Sex: Female
  Weight: 48 kg

DRUGS (7)
  1. PARACETAMOL [Concomitant]
     Active Substance: ACETAMINOPHEN
     Dosage: BEFORE DARATUMUMAB
     Route: 048
     Dates: start: 20200709, end: 20200723
  2. TAVEGIL                            /00137201/ [Concomitant]
     Active Substance: CLEMASTINE FUMARATE
     Dosage: BEFORE DARATUMUMAB
     Route: 042
     Dates: start: 20200709, end: 20200723
  3. DARATUMUMAB [Suspect]
     Active Substance: DARATUMUMAB
     Indication: PLASMA CELL MYELOMA
     Route: 042
     Dates: start: 20200716, end: 20200723
  4. DEXAMETHASONE. [Concomitant]
     Active Substance: DEXAMETHASONE
     Dosage: BEFORE DARATUMUMAB
     Route: 042
     Dates: start: 20200709, end: 20200723
  5. REVLIMID [Suspect]
     Active Substance: LENALIDOMIDE
     Indication: PLASMA CELL MYELOMA
     Dates: start: 20200709, end: 20200729
  6. CLOTRIMAZOLE. [Suspect]
     Active Substance: CLOTRIMAZOLE
     Indication: PRODUCT USED FOR UNKNOWN INDICATION
     Dosage: TWICE DAILY ON MONDAY AND THURSDAY
     Dates: start: 20200709, end: 20200730
  7. TORASEMIDE [Concomitant]
     Active Substance: TORSEMIDE
     Route: 048

REACTIONS (1)
  - Rash [Recovered/Resolved]

NARRATIVE: CASE EVENT DATE: 20200730
